FAERS Safety Report 24539151 (Version 1)
Quarter: 2024Q4

REPORT INFORMATION
  Report Type: Spontaneous
  Country: FR (occurrence: FR)
  Receive Date: 20241023
  Receipt Date: 20241023
  Transmission Date: 20250114
  Serious: Yes (Hospitalization)
  Sender: MYLAN
  Company Number: None

PATIENT
  Age: 75 Year
  Sex: Male
  Weight: 68.1 kg

DRUGS (8)
  1. PANTOPRAZOLE [Suspect]
     Active Substance: PANTOPRAZOLE
     Indication: Stent placement
     Dosage: 20 MILLIGRAM, QD
     Route: 048
     Dates: start: 20240629, end: 20240729
  2. BISOPROLOL [Suspect]
     Active Substance: BISOPROLOL\BISOPROLOL FUMARATE
     Indication: Stent placement
     Dosage: 2.5 MILLIGRAM, QD
     Route: 048
     Dates: start: 20240629, end: 20240729
  3. ATORVASTATIN [Suspect]
     Active Substance: ATORVASTATIN
     Indication: Stent placement
     Dosage: 80 MILLIGRAM, QD
     Route: 048
     Dates: start: 20240629, end: 20240729
  4. EPLERENONE [Concomitant]
     Active Substance: EPLERENONE
     Dosage: UNK
     Route: 065
  5. ENTRESTO [Concomitant]
     Active Substance: SACUBITRIL\VALSARTAN
     Dosage: UNK
     Route: 065
  6. PRASUGREL [Concomitant]
     Active Substance: PRASUGREL
     Dosage: UNK
     Route: 065
  7. ASPIRIN [Concomitant]
     Active Substance: ASPIRIN
     Dosage: UNK
     Route: 065
  8. DAPAGLIFLOZIN [Concomitant]
     Active Substance: DAPAGLIFLOZIN
     Dosage: UNK
     Route: 065

REACTIONS (3)
  - Hepatic cytolysis [Recovering/Resolving]
  - Hyperlipasaemia [Recovering/Resolving]
  - Cholestasis [Recovering/Resolving]

NARRATIVE: CASE EVENT DATE: 20240722
